FAERS Safety Report 11891279 (Version 1)
Quarter: 2016Q1

REPORT INFORMATION
  Report Type: Spontaneous
  Country: US (occurrence: None)
  Receive Date: 20160105
  Receipt Date: 20160105
  Transmission Date: 20160526
  Serious: Yes (Hospitalization)
  Sender: FDA-Public Use
  Company Number: None

PATIENT
  Age: 59 Year
  Sex: Male
  Weight: 50.93 kg

DRUGS (16)
  1. ALBUTEROL (PROVENTIL HFA) [Concomitant]
  2. HYDRALAZINE (APRESOLINE) [Concomitant]
  3. MYCOPHENOLATE (CELLCEPT) [Concomitant]
  4. SENNA (SENOKOT) [Concomitant]
  5. TACROLIMUS (PROGRAF) [Concomitant]
  6. NIZORAL [Concomitant]
     Active Substance: KETOCONAZOLE
  7. HARVONI [Suspect]
     Active Substance: LEDIPASVIR\SOFOSBUVIR
     Indication: HEPATITIS C
     Dosage: HARVONI 90-400MG QD PO
     Route: 048
     Dates: start: 20150629
  8. CINACALCET (SENSIPAR) [Concomitant]
  9. PREDNISONE (DELTASONE) [Concomitant]
  10. FLOMAX [Concomitant]
     Active Substance: TAMSULOSIN HYDROCHLORIDE
  11. ASPIRIN. [Concomitant]
     Active Substance: ASPIRIN
  12. MAGNESIUM OXIDE (MAG-OX) [Concomitant]
  13. METOPROLOL (LOPRESSOR) [Concomitant]
  14. COUMADIN [Concomitant]
     Active Substance: WARFARIN SODIUM
  15. DESIPRAMINE (NORPRAMIN) [Concomitant]
  16. NORVASC [Concomitant]
     Active Substance: AMLODIPINE BESYLATE

REACTIONS (3)
  - International normalised ratio decreased [None]
  - Vascular graft complication [None]
  - Stenosis [None]

NARRATIVE: CASE EVENT DATE: 20151210
